FAERS Safety Report 8586287-2 (Version None)
Quarter: 2012Q3

REPORT INFORMATION
  Report Type: 
  Country: None (occurrence: None)
  Receive Date: 20120810
  Receipt Date: 20120806
  Transmission Date: 20120928
  Serious: Yes (Life-Threatening, Hospitalization)
  Sender: FDA-Public Use
  Company Number: DE-ABBOTT-12P-062-0955637-00

PATIENT
  Sex: Female

DRUGS (2)
  1. HUMIRA [Suspect]
  2. HUMIRA [Suspect]
     Indication: PRODUCT USED FOR UNKNOWN INDICATION
     Dates: start: 20120530, end: 20120627

REACTIONS (7)
  - C-REACTIVE PROTEIN INCREASED [None]
  - SYSTEMIC INFLAMMATORY RESPONSE SYNDROME [None]
  - BACTERAEMIA [None]
  - BRONCHITIS [None]
  - URINARY TRACT INFECTION [None]
  - PROCALCITONIN INCREASED [None]
  - ESCHERICHIA URINARY TRACT INFECTION [None]
